FAERS Safety Report 12847661 (Version 1)
Quarter: 2016Q4

REPORT INFORMATION
  Report Type: Spontaneous
  Country: US (occurrence: US)
  Receive Date: 20161013
  Receipt Date: 20161013
  Transmission Date: 20170207
  Serious: Yes (Life-Threatening, Hospitalization)
  Sender: FDA-Public Use
  Company Number: None

PATIENT
  Age: 3 Month
  Sex: Male
  Weight: 5.3 kg

DRUGS (1)
  1. LINEZOLID. [Suspect]
     Active Substance: LINEZOLID
     Indication: ATYPICAL MYCOBACTERIUM TEST POSITIVE
     Dosage: ?          OTHER FREQUENCY:EVERY 8 HOURS; INTRAVENOUS (NOT OTHERWISE SPECIFIED)
     Route: 042
     Dates: start: 20161005, end: 20161005

REACTIONS (2)
  - Bronchospasm [None]
  - Anaphylactic reaction [None]

NARRATIVE: CASE EVENT DATE: 20161005
